FAERS Safety Report 6796418-2 (Version None)
Quarter: 2010Q2

REPORT INFORMATION
  Report Type: 
  Country: None (occurrence: None)
  Receive Date: 20100627
  Receipt Date: 20100622
  Transmission Date: 20101027
  Serious: Yes (Death, Hospitalization, Other)
  Sender: FDA-Public Use
  Company Number: US-BRISTOL-MYERS SQUIBB COMPANY-15137623

PATIENT
  Age: 39 Year
  Sex: Female
  Weight: 61 kg

DRUGS (5)
  1. SPRYCEL [Suspect]
     Indication: BREAST CANCER METASTATIC
     Dosage: 70MG BID
     Route: 048
     Dates: start: 20100528, end: 20100531
  2. VITAMINS [Concomitant]
  3. MOTRIN [Concomitant]
  4. MORPHINE SULFATE [Concomitant]
  5. DILAUDID [Concomitant]

REACTIONS (6)
  - ALANINE AMINOTRANSFERASE INCREASED [None]
  - ASPARTATE AMINOTRANSFERASE INCREASED [None]
  - HYPOTENSION [None]
  - PLATELET COUNT DECREASED [None]
  - PULMONARY HYPERTENSION [None]
  - SUDDEN DEATH [None]
